FAERS Safety Report 4761887-6 (Version None)
Quarter: 2005Q3

REPORT INFORMATION
  Report Type: 
  Country: None (occurrence: None)
  Receive Date: 20050906
  Receipt Date: 20050830
  Transmission Date: 20060218
  Serious: Yes (Hospitalization, Other)
  Sender: FDA-Public Use
  Company Number: US-BRISTOL-MYERS SQUIBB COMPANY-13094016

PATIENT
  Age: 73 Year
  Sex: Female
  Weight: 68 kg

DRUGS (2)
  1. CETUXIMAB [Suspect]
     Indication: NON-SMALL CELL LUNG CANCER
     Dosage: INITIAL TX DATE: 24-MAY-05.  LAST ADMINISTERED ON 29-AUG-2005
     Route: 042
     Dates: start: 20050823, end: 20050823
  2. RADIATION THERAPY [Suspect]
     Indication: NON-SMALL CELL LUNG CANCER
     Dosage: TOTAL DOSE TO DATE: 63 GY/NUMBER OF FRACTIONS: 35/NUMBER OF ELAPSED DAYS: 49
     Dates: start: 20050719, end: 20050719

REACTIONS (5)
  - CARDIO-RESPIRATORY ARREST [None]
  - FRACTURE [None]
  - PNEUMONIA [None]
  - PNEUMOTHORAX [None]
  - TRACHEOBRONCHITIS [None]
